FAERS Safety Report 26182592 (Version 1)
Quarter: 2025Q4

REPORT INFORMATION
  Report Type: Spontaneous
  Country: EU (occurrence: EU)
  Receive Date: 20251221
  Receipt Date: 20251221
  Transmission Date: 20260117
  Serious: Yes (Other)
  Sender: ACCORD
  Company Number: None

PATIENT
  Age: 42 Year
  Sex: Female
  Weight: 71 kg

DRUGS (1)
  1. METHOTREXATE [Suspect]
     Active Substance: METHOTREXATE
     Indication: Spondylitis
     Dosage: STRENGTH: 10 MG
     Dates: start: 20170101

REACTIONS (1)
  - Anosmia [Recovered/Resolved with Sequelae]

NARRATIVE: CASE EVENT DATE: 20230101
